FAERS Safety Report 4429016-6 (Version None)
Quarter: 2004Q3

REPORT INFORMATION
  Report Type: 
  Country: None (occurrence: None)
  Receive Date: 20040726
  Receipt Date: 20040427
  Transmission Date: 20050211
  Serious: No
  Sender: FDA-Public Use
  Company Number: USA040156030

PATIENT
  Age: 73 Year
  Sex: Female

DRUGS (1)
  1. FORTEO [Suspect]
     Dosage: 20 UG/DAY
     Dates: start: 20031201

REACTIONS (10)
  - ASTHENIA [None]
  - BLOOD CALCIUM INCREASED [None]
  - DIZZINESS [None]
  - DYSGEUSIA [None]
  - FATIGUE [None]
  - INCREASED APPETITE [None]
  - INFLUENZA [None]
  - INJECTION SITE PAIN [None]
  - NAUSEA [None]
  - WEIGHT INCREASED [None]
